FAERS Safety Report 5121987-8 (Version None)
Quarter: 2006Q4

REPORT INFORMATION
  Report Type: 
  Country: None (occurrence: None)
  Receive Date: 20061006
  Receipt Date: 20060925
  Transmission Date: 20070319
  Serious: Yes (Other)
  Sender: FDA-Public Use
  Company Number: PHEH2006US12247

PATIENT
  Age: 66 Year
  Sex: Male

DRUGS (3)
  1. DOXYCYCLINE [Concomitant]
     Dosage: 50 MG, UNK
  2. ZOMETA [Suspect]
     Dates: start: 20010521, end: 20060714
  3. AREDIA [Suspect]
     Dates: start: 20000829

REACTIONS (4)
  - GINGIVAL PAIN [None]
  - MOUTH ULCERATION [None]
  - SWELLING [None]
  - WOUND DRAINAGE [None]
